FAERS Safety Report 21414985 (Version 1)
Quarter: 2022Q4

REPORT INFORMATION
  Report Type: Spontaneous
  Country: DE (occurrence: DE)
  Receive Date: 20221006
  Receipt Date: 20221006
  Transmission Date: 20230113
  Serious: Yes (Life-Threatening, Hospitalization)
  Sender: FDA-Public Use
  Company Number: DE-SUN PHARMACEUTICAL INDUSTRIES LTD-2022RR-357657

PATIENT
  Age: 76 Year
  Sex: Female
  Weight: 56 kg

DRUGS (9)
  1. RAMIPRIL [Suspect]
     Active Substance: RAMIPRIL
     Indication: Product used for unknown indication
     Dosage: 5 MG, 1-0-0.5-0, TABLET
     Route: 048
  2. GABAPENTIN [Suspect]
     Active Substance: GABAPENTIN
     Indication: Product used for unknown indication
     Dosage: 800 MG, 1-0-1-0, TABLET
     Route: 048
  3. TRIMETHOPRIM [Suspect]
     Active Substance: TRIMETHOPRIM
     Indication: Product used for unknown indication
     Dosage: 150 MG, 1-0-1-0, TABLET
     Route: 048
  4. ASPIRIN [Concomitant]
     Active Substance: ASPIRIN
     Indication: Product used for unknown indication
     Dosage: 100 MG, 1-0-0-0, TABLET
     Route: 048
  5. RIVAROXABAN [Concomitant]
     Active Substance: RIVAROXABAN
     Indication: Product used for unknown indication
     Dosage: 15 MG, 1-0-1-0, TABLET
     Route: 048
  6. METOPROLOL [Concomitant]
     Active Substance: METOPROLOL
     Indication: Product used for unknown indication
     Dosage: 23.75 MG, 1-0-0-0, PROLONGED-RELEASE TABLETS
     Route: 048
  7. METAMIZOL [Concomitant]
     Active Substance: METAMIZOLE SODIUM
     Indication: Product used for unknown indication
     Dosage: 500 MG, 1-1-1-0, TABLET
     Route: 048
  8. SPIRIVA [Concomitant]
     Active Substance: TIOTROPIUM BROMIDE MONOHYDRATE
     Indication: Product used for unknown indication
     Dosage: 18 MCG, 1-0-0-0, CAPSULES
     Route: 055
  9. AMLODIPINE BESYLATE [Concomitant]
     Active Substance: AMLODIPINE BESYLATE
     Indication: Product used for unknown indication
     Dosage: 5 MG, NEED, TABLETS
     Route: 048

REACTIONS (6)
  - Product prescribing error [Unknown]
  - Product prescribing error [Unknown]
  - Hyponatraemia [Unknown]
  - Dizziness [Unknown]
  - Hypertensive emergency [Unknown]
  - Product monitoring error [Unknown]
